FAERS Safety Report 7328589-3 (Version None)
Quarter: 2011Q1

REPORT INFORMATION
  Report Type: 
  Country: None (occurrence: None)
  Receive Date: 20110225
  Receipt Date: 20110225
  Transmission Date: 20110831
  Serious: Yes (Hospitalization)
  Sender: FDA-Public Use
  Company Number: None

PATIENT
  Sex: Female
  Weight: 13.6 kg

DRUGS (2)
  1. WARFARIN SODIUM [Suspect]
     Indication: MITRAL VALVE REPLACEMENT
     Dosage: 5 MG DAILY PO
     Route: 048
     Dates: start: 20101007, end: 20101207
  2. ASPIRIN [Suspect]

REACTIONS (11)
  - HAEMATOCRIT DECREASED [None]
  - EPISTAXIS [None]
  - INTERNATIONAL NORMALISED RATIO INCREASED [None]
  - CHOKING [None]
  - HYPOPHAGIA [None]
  - COUGH [None]
  - HAEMOGLOBIN DECREASED [None]
  - HAEMATEMESIS [None]
  - UPPER RESPIRATORY TRACT INFECTION [None]
  - DRUG ADMINISTRATION ERROR [None]
  - PYREXIA [None]
